FAERS Safety Report 9388063 (Version 1)
Quarter: 2013Q3

REPORT INFORMATION
  Report Type: Spontaneous
  Country: US (occurrence: None)
  Receive Date: 20130703
  Receipt Date: 20130703
  Transmission Date: 20140515
  Serious: Yes (Hospitalization)
  Sender: FDA-Public Use
  Company Number: 2013-0949

PATIENT
  Sex: Female

DRUGS (2)
  1. KYPROLIS [Suspect]
     Indication: PLASMA CELL MYELOMA
     Dosage: 2 IN 1 WK, INTRAVENOUS
     Route: 042
     Dates: start: 201304
  2. PREDNISONE [Concomitant]

REACTIONS (1)
  - Femoral neck fracture [None]
